FAERS Safety Report 4818592-7 (Version None)
Quarter: 2005Q4

REPORT INFORMATION
  Report Type: 
  Country: None (occurrence: None)
  Receive Date: 20051026
  Receipt Date: 20050930
  Transmission Date: 20060501
  Serious: Yes (Other)
  Sender: FDA-Public Use
  Company Number: 2005BH002225

PATIENT
  Age: 52 Year
  Sex: Female
  Weight: 81 kg

DRUGS (9)
  1. HUMAN ALBUMIN GRIFOLS 20% [Suspect]
     Indication: HEPATIC FAILURE
     Dosage: 100 ML; AS NEEDED; IV
     Route: 042
     Dates: start: 20050929, end: 20050929
  2. MIDODRINE HCL [Concomitant]
  3. THIAMINE [Concomitant]
  4. PROPRANOLOL [Concomitant]
  5. LACTULOSE [Concomitant]
  6. ZOTON [Concomitant]
  7. FLOW K TABS [Concomitant]
  8. FUROSEMIDE [Concomitant]
  9. CODEINE [Concomitant]

REACTIONS (4)
  - BODY TEMPERATURE INCREASED [None]
  - CHILLS [None]
  - HYPERTENSION [None]
  - TACHYCARDIA [None]
